FAERS Safety Report 8168922-6 (Version None)
Quarter: 2012Q1

REPORT INFORMATION
  Report Type: 
  Country: None (occurrence: None)
  Receive Date: 20120227
  Receipt Date: 20120217
  Transmission Date: 20120608
  Serious: Yes (Life-Threatening, Hospitalization)
  Sender: FDA-Public Use
  Company Number: US-CELGENEUS-163-21880-12013114

PATIENT
  Sex: Male

DRUGS (2)
  1. REVLIMID [Suspect]
     Dosage: 10 MILLIGRAM
     Route: 048
     Dates: start: 20111001, end: 20120101
  2. PROCRIT [Concomitant]
     Route: 065

REACTIONS (5)
  - SKIN REACTION [None]
  - PRURITUS [None]
  - OEDEMA PERIPHERAL [None]
  - DRY SKIN [None]
  - HAEMOGLOBIN DECREASED [None]
